FAERS Safety Report 5096732-5 (Version None)
Quarter: 2006Q3

REPORT INFORMATION
  Report Type: 
  Country: None (occurrence: None)
  Receive Date: 20060831
  Receipt Date: 20060818
  Transmission Date: 20061208
  Serious: Yes (Hospitalization)
  Sender: FDA-Public Use
  Company Number: 2006033256

PATIENT
  Age: 80 Year
  Sex: Female

DRUGS (7)
  1. HALCION [Suspect]
     Indication: INSOMNIA
     Dosage: 0.25 MG (1 D), ORAL
     Route: 048
     Dates: start: 20050805
  2. OLMESARTAN (OLMESARTAN) [Suspect]
     Indication: HYPERTENSION
     Dosage: 20 MG (1 D), ORAL
     Route: 048
     Dates: start: 20050805
  3. OMEPRAZOLE [Suspect]
     Indication: REFLUX OESOPHAGITIS
     Dosage: 40 MG (1 D), ORAL
     Route: 048
     Dates: start: 20050805
  4. EFONIDIPINE HYDROCHLORIDE (EFONIDIPINE HYDROCHLORIDE) [Suspect]
     Indication: HYPERTENSION
     Dosage: 10 MG (1 D), ORAL
     Route: 048
     Dates: start: 20050805
  5. METOCLOPRAMIDE [Suspect]
     Indication: GASTRITIS
     Dosage: 45 MG (1 D), ORAL
     Route: 048
     Dates: start: 20050913
  6. OSELTAMIVIR PHOSPHATE (OSELTAMIVIR PHOSPHATE) [Suspect]
     Indication: INFLUENZA
     Dosage: 300 MG (1 D), ORAL
     Route: 048
     Dates: start: 20060217, end: 20060221
  7. SPIRONOLACTONE [Concomitant]

REACTIONS (6)
  - APRAXIA [None]
  - BLOOD CREATININE INCREASED [None]
  - DEHYDRATION [None]
  - GAIT DISTURBANCE [None]
  - INFLUENZA [None]
  - RHABDOMYOLYSIS [None]
